FAERS Safety Report 5005814-5 (Version None)
Quarter: 2006Q2

REPORT INFORMATION
  Report Type: 
  Country: None (occurrence: None)
  Receive Date: 20060517
  Receipt Date: 20060517
  Transmission Date: 20061013
  Serious: Yes (Death, Hospitalization)
  Sender: FDA-Public Use
  Company Number: None

PATIENT
  Age: 83 Year
  Sex: Male
  Weight: 79.3795 kg

DRUGS (1)
  1. PACERONE [Suspect]
     Indication: CARDIAC DISORDER
     Dosage: 1 TAB. TWO TIMES A DAY FOR 2 WEEKS;THEN ONE TABLET DAILY THEREAFTER
     Dates: start: 20050805, end: 20060307

REACTIONS (10)
  - DEPRESSED LEVEL OF CONSCIOUSNESS [None]
  - DYSPNOEA [None]
  - GENERAL PHYSICAL HEALTH DETERIORATION [None]
  - INFLAMMATION [None]
  - LUNG DISORDER [None]
  - PNEUMONIA [None]
  - PO2 DECREASED [None]
  - POST PROCEDURAL COMPLICATION [None]
  - PULMONARY FIBROSIS [None]
  - SCAR [None]
